FAERS Safety Report 10953165 (Version 2)
Quarter: 2015Q3

REPORT INFORMATION
  Report Type: Spontaneous
  Country: US (occurrence: US)
  Receive Date: 20150325
  Receipt Date: 20150715
  Transmission Date: 20151125
  Serious: No
  Sender: FDA-Public Use
  Company Number: US-009507513-1503USA008343

PATIENT
  Age: 45 Year
  Sex: Female

DRUGS (2)
  1. FLONASE [Concomitant]
     Active Substance: FLUTICASONE PROPIONATE
  2. GRASTEK [Suspect]
     Active Substance: PHLEUM PRATENSE POLLEN
     Indication: HYPERSENSITIVITY
     Dosage: STRENGTH AND DOSE: 2800 BAU
     Route: 060
     Dates: start: 20150313

REACTIONS (9)
  - Tongue blistering [Recovering/Resolving]
  - Erythema [Recovered/Resolved]
  - Lip blister [Recovered/Resolved]
  - Flushing [Recovering/Resolving]
  - Lip pruritus [Recovering/Resolving]
  - Lip swelling [Recovering/Resolving]
  - Tongue pruritus [Recovering/Resolving]
  - Swollen tongue [Recovered/Resolved]
  - Throat irritation [Recovering/Resolving]

NARRATIVE: CASE EVENT DATE: 20150313
